FAERS Safety Report 21965861 (Version 1)
Quarter: 2023Q1

REPORT INFORMATION
  Report Type: Spontaneous
  Country: US (occurrence: US)
  Receive Date: 20230208
  Receipt Date: 20230208
  Transmission Date: 20230417
  Serious: Yes (Other)
  Sender: FDA-Public Use
  Company Number: US-AMGEN-USASP2023018139

PATIENT
  Age: 28 Year
  Sex: Male

DRUGS (10)
  1. FILGRASTIM [Suspect]
     Active Substance: FILGRASTIM
     Indication: Infantile genetic agranulocytosis
     Dosage: UNK
     Route: 065
  2. ROMIPLOSTIM [Suspect]
     Active Substance: ROMIPLOSTIM
     Indication: Thrombocytopenia
     Dosage: UNK
     Route: 065
  3. EPOETIN ALFA [Suspect]
     Active Substance: ERYTHROPOIETIN
     Indication: Congenital aplastic anaemia
     Dosage: UNK
     Route: 065
  4. EPOETIN ALFA [Suspect]
     Active Substance: ERYTHROPOIETIN
     Indication: Off label use
  5. RIBAVIRIN [Concomitant]
     Active Substance: RIBAVIRIN
  6. ERYTHROPOIETIN [Concomitant]
     Active Substance: ERYTHROPOIETIN
  7. TESTOSTERONE [Concomitant]
     Active Substance: TESTOSTERONE
  8. THYMOCYTE IMMUNE GLOBULIN NOS [Concomitant]
     Active Substance: THYMOCYTE IMMUNE GLOBULIN NOS
  9. CYCLOSPORINE [Concomitant]
     Active Substance: CYCLOSPORINE
  10. ELTROMBOPAG [Concomitant]
     Active Substance: ELTROMBOPAG

REACTIONS (6)
  - Intellectual disability [Unknown]
  - Encephalopathy [Unknown]
  - Cortical dysplasia [Unknown]
  - Gene mutation [Unknown]
  - Bone marrow failure [Unknown]
  - Off label use [Unknown]
